FAERS Safety Report 8818161 (Version 1)
Quarter: 2012Q4

REPORT INFORMATION
  Report Type: 
  Country: US (occurrence: US)
  Receive Date: 20121001
  Receipt Date: 20121001
  Transmission Date: 20130627
  Serious: Yes (Other)
  Sender: FDA-Public Use
  Company Number: US-BAXTER-2012BAX018170

PATIENT
  Age: 35 Year
  Sex: Female

DRUGS (3)
  1. DOBUTAMINE  HYDROCHLORIDE IN 5% DEXTROSE INJECTION [Suspect]
     Indication: CARDIAC STRESS TEST
  2. DOBUTAMINE  HYDROCHLORIDE IN 5% DEXTROSE INJECTION [Suspect]
     Indication: OFF LABEL USE
  3. WARFARIN [Concomitant]
     Indication: ANTICOAGULANT THERAPY

REACTIONS (1)
  - Cerebrovascular accident [Recovered/Resolved]
